FAERS Safety Report 6887470-4 (Version None)
Quarter: 2010Q3

REPORT INFORMATION
  Report Type: 
  Country: None (occurrence: None)
  Receive Date: 20100708
  Receipt Date: 20091222
  Transmission Date: 20110219
  Serious: Yes (Other)
  Sender: FDA-Public Use
  Company Number: 2009314071

PATIENT
  Age: 24 Year
  Sex: Female
  Weight: 72.1 kg

DRUGS (1)
  1. CHANTIX [Suspect]
     Indication: SMOKING CESSATION THERAPY
     Dosage: 0.5 MG, 2X/DAY, ORAL
     Route: 048
     Dates: start: 20091201, end: 20091220

REACTIONS (3)
  - ANGER [None]
  - NERVOUSNESS [None]
  - SUICIDAL IDEATION [None]
